FAERS Safety Report 5977543-2 (Version None)
Quarter: 2008Q4

REPORT INFORMATION
  Report Type: 
  Country: None (occurrence: None)
  Receive Date: 20081201
  Receipt Date: 20081201
  Transmission Date: 20090506
  Serious: Yes (Other)
  Sender: FDA-Public Use
  Company Number: None

PATIENT
  Age: 62 Year
  Sex: Female
  Weight: 70.3075 kg

DRUGS (1)
  1. RAPTIVA [Suspect]
     Indication: PSORIASIS
     Dosage: .70 DAILY SQ
     Route: 058
     Dates: start: 20080208, end: 20080524

REACTIONS (6)
  - CONDITION AGGRAVATED [None]
  - PAIN [None]
  - PSORIASIS [None]
  - SCAR [None]
  - TEMPORAL ARTERITIS [None]
  - WOUND [None]
